FAERS Safety Report 10571569 (Version 1)
Quarter: 2014Q4

REPORT INFORMATION
  Report Type: Spontaneous
  Country: PT (occurrence: PT)
  Receive Date: 20141107
  Receipt Date: 20141107
  Transmission Date: 20150529
  Serious: Yes (Death, Hospitalization)
  Sender: FDA-Public Use
  Company Number: PT-CUBIST PHARMACEUTICALS, INC.-2014CBST001523

PATIENT

DRUGS (25)
  1. CYCLOSPORINE. [Concomitant]
     Active Substance: CYCLOSPORINE
     Indication: CHRONIC GRAFT VERSUS HOST DISEASE
     Dosage: UNK UNK, UNK
     Route: 065
  2. VANCOMYCIN [Concomitant]
     Active Substance: VANCOMYCIN
     Indication: ENTEROCOCCAL BACTERAEMIA
     Dosage: UNK UNK, UNK
     Route: 065
  3. VANCOMYCIN [Concomitant]
     Active Substance: VANCOMYCIN
     Indication: ENTEROCOLITIS BACTERIAL
  4. CUBICIN [Suspect]
     Active Substance: DAPTOMYCIN
     Indication: OFF LABEL USE
  5. CASPOFUNGIN [Suspect]
     Active Substance: CASPOFUNGIN
     Indication: PNEUMONIA
  6. CIDOFOVIR. [Suspect]
     Active Substance: CIDOFOVIR
     Indication: PNEUMONIA
  7. ATOVAQUONE. [Suspect]
     Active Substance: ATOVAQUONE
     Indication: PNEUMONIA
  8. MEROPENEM. [Concomitant]
     Active Substance: MEROPENEM
     Indication: ENTEROCOCCAL INFECTION
  9. POSACONAZOLE [Concomitant]
     Active Substance: POSACONAZOLE
     Indication: PROPHYLAXIS
     Dosage: UNK UNK, UNK
     Route: 065
  10. ACYCLOVIR                          /00587301/ [Concomitant]
     Active Substance: ACYCLOVIR
     Indication: ENTEROCOCCAL BACTERAEMIA
     Dosage: UNK UNK, UNK
     Route: 065
  11. CIDOFOVIR. [Suspect]
     Active Substance: CIDOFOVIR
     Indication: SEPTIC SHOCK
     Dosage: UNK UNK, UNK
     Route: 065
  12. GRANULOCYTE COLONY STIMULATING FACTOR [Concomitant]
     Active Substance: GRANULOCYTE COLONY-STIMULATING FACTOR NOS
     Indication: APLASIA
     Dosage: UNK UNK, UNK
     Route: 065
  13. CUBICIN [Suspect]
     Active Substance: DAPTOMYCIN
     Indication: SEPTIC SHOCK
     Dosage: UNK UNK, UNK
     Route: 065
  14. PIPERACILLIN/TAZOBACTAM [Suspect]
     Active Substance: PIPERACILLIN SODIUM\TAZOBACTAM SODIUM
     Indication: SEPTIC SHOCK
     Dosage: UNK UNK, UNK
     Route: 065
  15. MEROPENEM. [Concomitant]
     Active Substance: MEROPENEM
     Indication: ENTEROCOCCAL BACTERAEMIA
     Dosage: UNK UNK, UNK
     Route: 065
  16. MEROPENEM. [Concomitant]
     Active Substance: MEROPENEM
     Indication: ENTEROCOLITIS BACTERIAL
  17. ACYCLOVIR                          /00587301/ [Concomitant]
     Active Substance: ACYCLOVIR
     Indication: ENTEROCOLITIS BACTERIAL
  18. ACYCLOVIR                          /00587301/ [Concomitant]
     Active Substance: ACYCLOVIR
     Indication: ENTEROCOCCAL INFECTION
  19. CUBICIN [Suspect]
     Active Substance: DAPTOMYCIN
     Indication: PNEUMONIA
  20. ATOVAQUONE. [Suspect]
     Active Substance: ATOVAQUONE
     Indication: PROPHYLAXIS
     Dosage: UNK UNK, UNK
     Route: 065
  21. CASPOFUNGIN [Suspect]
     Active Substance: CASPOFUNGIN
     Indication: SEPTIC SHOCK
     Dosage: UNK UNK, UNK
     Route: 065
  22. VANCOMYCIN [Concomitant]
     Active Substance: VANCOMYCIN
     Indication: ENTEROCOCCAL INFECTION
  23. PIPERACILLIN/TAZOBACTAM [Suspect]
     Active Substance: PIPERACILLIN SODIUM\TAZOBACTAM SODIUM
     Indication: PNEUMONIA
  24. ATOVAQUONE. [Suspect]
     Active Substance: ATOVAQUONE
     Indication: SEPTIC SHOCK
     Dosage: UNK UNK, UNK
     Route: 065
  25. CORTICOSTEROIDS [Concomitant]
     Active Substance: CORTICOSTEROID NOS
     Indication: CHRONIC GRAFT VERSUS HOST DISEASE
     Dosage: UNK UNK, UNK
     Route: 065

REACTIONS (5)
  - Fusarium infection [Unknown]
  - Septic shock [Fatal]
  - Off label use [Unknown]
  - Papule [Unknown]
  - Renal failure [Unknown]
